FAERS Safety Report 4613490-6 (Version None)
Quarter: 2005Q1

REPORT INFORMATION
  Report Type: 
  Country: None (occurrence: None)
  Receive Date: 20050321
  Receipt Date: 20050309
  Transmission Date: 20050727
  Serious: Yes (Hospitalization)
  Sender: FDA-Public Use
  Company Number: ES-JNJFOC-20050302643

PATIENT
  Age: 20 Year
  Sex: Male

DRUGS (3)
  1. REMICADE [Suspect]
     Indication: DRUG USE FOR UNKNOWN INDICATION
     Dosage: DURATION 2-3 YEARS (INITIATED IN 2002-2003)
     Route: 042
  2. DACORTIN [Concomitant]
     Route: 065
  3. AZATHIOPRINE [Concomitant]
     Route: 065

REACTIONS (1)
  - NOCARDIOSIS [None]
